FAERS Safety Report 24194636 (Version 1)
Quarter: 2024Q3

REPORT INFORMATION
  Report Type: Spontaneous
  Country: US (occurrence: US)
  Receive Date: 20240809
  Receipt Date: 20240809
  Transmission Date: 20241016
  Serious: No
  Sender: MYLAN
  Company Number: US-MYLANLABS-2024M1071243

PATIENT
  Sex: Female
  Weight: 102.06 kg

DRUGS (1)
  1. LIDOCAINE PATCH [Suspect]
     Active Substance: LIDOCAINE
     Indication: Arthritis
     Dosage: 5 PERCENT (ONE PATCH TO BOTH KNEES)
     Route: 003
     Dates: start: 20240727

REACTIONS (2)
  - Off label use [Unknown]
  - Product adhesion issue [Unknown]
